FAERS Safety Report 7475863-6 (Version None)
Quarter: 2011Q2

REPORT INFORMATION
  Report Type: 
  Country: None (occurrence: None)
  Receive Date: 20110504
  Receipt Date: 20110420
  Transmission Date: 20111010
  Serious: Yes (Hospitalization, Other)
  Sender: FDA-Public Use
  Company Number: 8033874

PATIENT
  Sex: Female
  Weight: 55 kg

DRUGS (7)
  1. CIMZIA [Suspect]
     Indication: RHEUMATOID ARTHRITIS
     Dosage: 400 MG, DOSE FREQ: ONCE MONTHLY SUBCUTANEOUS; 400 MG, DOSE FREQ: ONCE MONTHLY SUBCUTANEOUS
     Route: 058
     Dates: start: 20040602, end: 20080519
  2. CIMZIA [Suspect]
     Indication: RHEUMATOID ARTHRITIS
     Dosage: 400 MG, DOSE FREQ: ONCE MONTHLY SUBCUTANEOUS; 400 MG, DOSE FREQ: ONCE MONTHLY SUBCUTANEOUS
     Route: 058
     Dates: start: 20031016
  3. DIGOXIN [Concomitant]
  4. ENAP [Concomitant]
  5. VOLTAREN [Concomitant]
  6. ORTANOL [Concomitant]
  7. RHEFLUIN [Concomitant]

REACTIONS (7)
  - CALCULUS URETERIC [None]
  - HYDRONEPHROSIS [None]
  - DIABETES MELLITUS [None]
  - BLOOD CREATININE INCREASED [None]
  - PYELONEPHRITIS [None]
  - PYURIA [None]
  - ESCHERICHIA TEST POSITIVE [None]
